FAERS Safety Report 9246228 (Version 1)
Quarter: 2013Q2

REPORT INFORMATION
  Report Type: Spontaneous
  Country: US (occurrence: US)
  Receive Date: 20130422
  Receipt Date: 20130422
  Transmission Date: 20140414
  Serious: No
  Sender: FDA-Public Use
  Company Number: US-ABBOTT-13P-163-1056117-00

PATIENT
  Age: 9 Year
  Sex: Female
  Weight: 46.31 kg

DRUGS (2)
  1. LUPRON DEPOT-PED (3 MONTH) [Suspect]
     Indication: PRECOCIOUS PUBERTY
     Dates: start: 20120531, end: 201208
  2. UNKNOWN HEPATITIS A IMMUNIZATION [Concomitant]
     Indication: PRODUCT USED FOR UNKNOWN INDICATION
     Dates: start: 20120807, end: 20120807

REACTIONS (5)
  - Injection site nodule [Recovering/Resolving]
  - Injection site mass [Recovering/Resolving]
  - Injection site granuloma [Recovering/Resolving]
  - Injection site pain [Recovering/Resolving]
  - Injection site abscess [Recovering/Resolving]
